FAERS Safety Report 5612470-1 (Version None)
Quarter: 2008Q1

REPORT INFORMATION
  Report Type: 
  Country: None (occurrence: None)
  Receive Date: 20080204
  Receipt Date: 20080122
  Transmission Date: 20080703
  Serious: Yes (Hospitalization)
  Sender: FDA-Public Use
  Company Number: US-ROCHE-542764

PATIENT
  Age: 45 Year
  Sex: Female
  Weight: 83 kg

DRUGS (8)
  1. PEG-INTERFERON ALFA 2A (RO 25-8310) [Suspect]
     Dosage: ADMINISTERED QW.
     Route: 058
     Dates: start: 20071009
  2. RIBAVIRIN [Suspect]
     Dosage: DOSE-BLINDED.
     Route: 048
     Dates: start: 20071001
  3. INVIRASE [Concomitant]
     Dates: start: 20070718
  4. NORVIR [Concomitant]
     Dates: start: 20070111
  5. XANAX [Concomitant]
     Dates: start: 20040327
  6. PERCOCET [Concomitant]
     Dates: start: 20040527
  7. TRUVADA [Concomitant]
     Dates: start: 20070405
  8. PROCRIT [Concomitant]
     Dates: start: 20071112

REACTIONS (1)
  - CHRONIC OBSTRUCTIVE PULMONARY DISEASE [None]
